FAERS Safety Report 20890881 (Version 1)
Quarter: 2022Q2

REPORT INFORMATION
  Report Type: Spontaneous
  Country: US (occurrence: US)
  Receive Date: 20220530
  Receipt Date: 20220530
  Transmission Date: 20220720
  Serious: Yes (Other)
  Sender: FDA-Public Use
  Company Number: US-CELGENE-USA-20220302608

PATIENT
  Age: 82 Year
  Sex: Female
  Weight: 60.78 kg

DRUGS (1)
  1. REVLIMID [Suspect]
     Active Substance: LENALIDOMIDE
     Indication: Plasma cell myeloma
     Dosage: 25 MILLIGRAM 1 TAB DAILY FOR 14 DAYS, 7 DAYS OFF
     Route: 048
     Dates: start: 20211211

REACTIONS (2)
  - Venous thrombosis limb [Not Recovered/Not Resolved]
  - Off label use [Unknown]
